FAERS Safety Report 25541304 (Version 4)
Quarter: 2025Q3

REPORT INFORMATION
  Report Type: Report from Study
  Country: US (occurrence: US)
  Receive Date: 20250711
  Receipt Date: 20250820
  Transmission Date: 20251020
  Serious: No
  Sender: MALLINCKRODT
  Company Number: US-MALLINCKRODT-MNK202503988

PATIENT
  Age: 35 Year
  Sex: Female
  Weight: 102 kg

DRUGS (3)
  1. CORTICOTROPIN [Suspect]
     Active Substance: CORTICOTROPIN
     Indication: Rheumatoid arthritis
     Route: 058
     Dates: start: 20250624
  2. DEVICE [Suspect]
     Active Substance: DEVICE
     Indication: Product used for unknown indication
  3. ENBREL [Concomitant]
     Active Substance: ETANERCEPT

REACTIONS (6)
  - Flushing [Unknown]
  - Inflammation [Unknown]
  - Pollakiuria [Unknown]
  - Dermatitis contact [Unknown]
  - Injection site discharge [Unknown]
  - Injection site pain [Unknown]

NARRATIVE: CASE EVENT DATE: 20250101
